FAERS Safety Report 4998287-X (Version None)
Quarter: 2006Q2

REPORT INFORMATION
  Report Type: 
  Country: None (occurrence: None)
  Receive Date: 20060508
  Receipt Date: 20060426
  Transmission Date: 20061013
  Serious: Yes (Death, Other)
  Sender: FDA-Public Use
  Company Number: 2006056173

PATIENT
  Age: 15 Year
  Sex: Female
  Weight: 60 kg

DRUGS (3)
  1. BENADRYL [Suspect]
     Dosage: UNSPECIFIED, ORAL
     Route: 048
     Dates: start: 20060320, end: 20060320
  2. ASPIRIN [Suspect]
     Dosage: UNSPECIFIED, UNKNOWN
     Route: 065
  3. ACETAMINOPHEN [Suspect]
     Dosage: UNSPECIFIED, UNKNOWN
     Route: 065

REACTIONS (4)
  - CONVULSION [None]
  - GASTRIC HAEMORRHAGE [None]
  - OVERDOSE [None]
  - PYREXIA [None]
